FAERS Safety Report 9458103 (Version 2)
Quarter: 2013Q4

REPORT INFORMATION
  Report Type: Report from Study
  Country: BR (occurrence: BR)
  Receive Date: 20130814
  Receipt Date: 20131021
  Transmission Date: 20140711
  Serious: Yes (Other)
  Sender: FDA-Public Use
  Company Number: PHHY2013BR067639

PATIENT
  Sex: Female
  Weight: 67 kg

DRUGS (8)
  1. GILENYA [Suspect]
     Indication: MULTIPLE SCLEROSIS
     Dosage: 1 DF, QD
     Route: 048
     Dates: start: 201302
  2. OMEPRAZOLE [Concomitant]
     Dosage: 20 MG, UNK
  3. BUPROPION [Concomitant]
     Indication: DEPRESSION
     Dosage: 150 MG, UNK
  4. EFEXOR [Concomitant]
     Indication: DEPRESSION
  5. SELOZOK [Concomitant]
     Indication: HYPERTENSION
     Dosage: 25 MG, UNK
  6. SELOZOK [Concomitant]
     Dosage: 50 MG, UNK
  7. SELOZOK [Concomitant]
     Dosage: 100 MG, UNK
  8. STAVIGILE [Concomitant]
     Indication: FATIGUE
     Dosage: 200 MG, UNK

REACTIONS (8)
  - Decreased immune responsiveness [Unknown]
  - Diverticulitis [Not Recovered/Not Resolved]
  - Urinary tract infection [Recovering/Resolving]
  - Sinusitis [Recovering/Resolving]
  - Influenza [Not Recovered/Not Resolved]
  - Aphonia [Unknown]
  - Nasal congestion [Not Recovered/Not Resolved]
  - Nasopharyngitis [Recovering/Resolving]
